FAERS Safety Report 6795834-2 (Version None)
Quarter: 2010Q2

REPORT INFORMATION
  Report Type: 
  Country: None (occurrence: None)
  Receive Date: 20100625
  Receipt Date: 20100622
  Transmission Date: 20101027
  Serious: Yes (Hospitalization)
  Sender: FDA-Public Use
  Company Number: A0864301A

PATIENT
  Sex: Female

DRUGS (10)
  1. ADVAIR DISKUS 100/50 [Suspect]
     Indication: DRUG USE FOR UNKNOWN INDICATION
     Dosage: 1PUFF VARIABLE DOSE
     Route: 055
     Dates: start: 20090101
  2. NEURONTIN [Suspect]
  3. SYMBICORT [Suspect]
  4. ATIVAN [Concomitant]
  5. ACTONEL [Concomitant]
  6. NAPROXEN [Concomitant]
  7. BENTYL [Concomitant]
  8. BUPAP [Concomitant]
  9. LEXAPRO [Concomitant]
  10. REMERON [Concomitant]

REACTIONS (3)
  - BLOOD SODIUM DECREASED [None]
  - FEELING ABNORMAL [None]
  - IRRITABLE BOWEL SYNDROME [None]
